FAERS Safety Report 9868473 (Version 5)
Quarter: 2014Q1

REPORT INFORMATION
  Report Type: Spontaneous
  Country: JP (occurrence: JP)
  Receive Date: 20140204
  Receipt Date: 20140304
  Transmission Date: 20141002
  Serious: Yes (Other)
  Sender: FDA-Public Use
  Company Number: JP-PFIZER INC-2014031255

PATIENT
  Age: 75 Year
  Sex: Male

DRUGS (5)
  1. LYRICA [Suspect]
     Indication: SPINAL COLUMN STENOSIS
     Dosage: 25 MG, DAILY
     Route: 048
     Dates: start: 20140115, end: 20140127
  2. CELECOX [Suspect]
     Indication: SPINAL COLUMN STENOSIS
     Dosage: 200 MG, DAILY
     Route: 048
     Dates: start: 20140115, end: 20140127
  3. CEFTRIAXONE [Concomitant]
     Indication: PNEUMONIA BACTERIAL
     Dosage: 1 G, DAILY
     Route: 048
     Dates: end: 20140127
  4. LANSOPRAZOLE [Concomitant]
     Indication: SPINAL COLUMN STENOSIS
     Dosage: UNK
     Route: 048
     Dates: start: 20140115, end: 20140127
  5. SELBEX [Concomitant]
     Indication: SPINAL COLUMN STENOSIS
     Dosage: UNK
     Route: 042
     Dates: start: 20140115, end: 20140127

REACTIONS (2)
  - Off label use [Unknown]
  - Pneumonia bacterial [Recovering/Resolving]
